FAERS Safety Report 6197394-6 (Version None)
Quarter: 2009Q2

REPORT INFORMATION
  Report Type: 
  Country: None (occurrence: None)
  Receive Date: 20090518
  Receipt Date: 20090512
  Transmission Date: 20091009
  Serious: Yes (Hospitalization, Other)
  Sender: FDA-Public Use
  Company Number: SPV1-2009-00936

PATIENT
  Age: 17 Year
  Sex: Male

DRUGS (4)
  1. VYVANSE [Suspect]
     Indication: ATTENTION DEFICIT/HYPERACTIVITY DISORDER
     Dosage: 50 MG, 1X/DAY QD, ORAL
     Route: 048
     Dates: start: 20080101, end: 20080901
  2. PAXIL [Suspect]
     Indication: ATTENTION DEFICIT/HYPERACTIVITY DISORDER
     Dosage: 10 MG, 2X/D BID, ORAL
     Route: 048
     Dates: start: 20080601, end: 20080901
  3. CLARITIN /00917501/ (LORATADINE) [Concomitant]
  4. ALBUTEROL /00139502/ (SALBUTAMOL SULFATE) [Concomitant]

REACTIONS (8)
  - CHEST PAIN [None]
  - DEPRESSION [None]
  - HEART RATE IRREGULAR [None]
  - HIGH DENSITY LIPOPROTEIN DECREASED [None]
  - OFF LABEL USE [None]
  - SUICIDAL IDEATION [None]
  - TREMOR [None]
  - WEIGHT DECREASED [None]
